FAERS Safety Report 4546623-0 (Version None)
Quarter: 2005Q1

REPORT INFORMATION
  Report Type: 
  Country: None (occurrence: None)
  Receive Date: 20050103
  Receipt Date: 20041214
  Transmission Date: 20050727
  Serious: Yes (Death, Hospitalization, Other)
  Sender: FDA-Public Use
  Company Number: FR_041205421

PATIENT
  Age: 75 Year
  Sex: Male

DRUGS (5)
  1. ALIMTA [Suspect]
     Indication: PLEURAL MESOTHELIOMA MALIGNANT
     Dosage: 500 MG/M2/1 OTHER
     Dates: start: 20041101
  2. PARAPLATIN [Concomitant]
  3. FOLIC ACID [Concomitant]
  4. VITAMIN B-12 [Concomitant]
  5. BETAMETHASONE [Concomitant]

REACTIONS (3)
  - COLORECTAL CANCER RECURRENT [None]
  - INTESTINAL OBSTRUCTION [None]
  - PANCYTOPENIA [None]
